FAERS Safety Report 16988615 (Version 2)
Quarter: 2019Q4

REPORT INFORMATION
  Report Type: Report from Study
  Country: US (occurrence: US)
  Receive Date: 20191104
  Receipt Date: 20191206
  Transmission Date: 20200122
  Serious: No
  Sender: FDA-Public Use
  Company Number: US-BEH-2019108688

PATIENT
  Age: 39 Year
  Sex: Female
  Weight: 101.59 kg

DRUGS (1)
  1. HIZENTRA [Suspect]
     Active Substance: HUMAN IMMUNOGLOBULIN G
     Indication: IMMUNODEFICIENCY COMMON VARIABLE
     Dosage: 10 GRAM, QW
     Route: 058
     Dates: start: 20191023, end: 20191106

REACTIONS (6)
  - Headache [Recovered/Resolved]
  - Infusion site swelling [Recovered/Resolved]
  - Infusion site erythema [Recovered/Resolved]
  - Fatigue [Recovered/Resolved]
  - No adverse event [Unknown]
  - Product supply issue [Unknown]

NARRATIVE: CASE EVENT DATE: 20191023
